FAERS Safety Report 4916919-9 (Version None)
Quarter: 2006Q1

REPORT INFORMATION
  Report Type: 
  Country: None (occurrence: None)
  Receive Date: 20060220
  Receipt Date: 20060210
  Transmission Date: 20060701
  Serious: Yes (Other)
  Sender: FDA-Public Use
  Company Number: US-ABBOTT-06P-163-0324683-00

PATIENT
  Sex: Male

DRUGS (2)
  1. OMNICEF [Suspect]
     Indication: LOWER RESPIRATORY TRACT INFECTION
     Dates: start: 20060203, end: 20060208
  2. AZITHROMYCIN [Concomitant]
     Indication: LOWER RESPIRATORY TRACT INFECTION
     Dates: start: 20060209

REACTIONS (3)
  - ARTHRALGIA [None]
  - DIFFICULTY IN WALKING [None]
  - NEUROPATHY [None]
